FAERS Safety Report 5202617-3 (Version None)
Quarter: 2006Q4

REPORT INFORMATION
  Report Type: 
  Country: None (occurrence: None)
  Receive Date: 20061016
  Receipt Date: 20060809
  Transmission Date: 20070319
  Serious: No
  Sender: FDA-Public Use
  Company Number: 2006SP002957

PATIENT
  Age: 78 Year
  Sex: Female
  Weight: 70.7611 kg

DRUGS (6)
  1. LUNESTA [Suspect]
     Indication: INSOMNIA
     Dosage: 2 MB; ORAL
     Route: 048
     Dates: start: 20060808
  2. ANASTROZOLE [Concomitant]
  3. VALSARTAN [Concomitant]
  4. LOVASTATIN [Concomitant]
  5. VITAMINS [Concomitant]
  6. TEMAZEPAM [Concomitant]

REACTIONS (1)
  - DYSGEUSIA [None]
